FAERS Safety Report 15707745 (Version 1)
Quarter: 2018Q4

REPORT INFORMATION
  Report Type: Spontaneous
  Country: IN (occurrence: IN)
  Receive Date: 20181211
  Receipt Date: 20181211
  Transmission Date: 20190205
  Serious: Yes (Death, Other)
  Sender: FDA-Public Use
  Company Number: None

PATIENT
  Age: 25 Year
  Sex: Male
  Weight: 60 kg

DRUGS (16)
  1. PYZINA [Concomitant]
     Active Substance: PYRAZINAMIDE
  2. LASIX [Concomitant]
     Active Substance: FUROSEMIDE
  3. WARFARIN [Concomitant]
     Active Substance: WARFARIN
  4. PTINR [Concomitant]
  5. FEBUTAZ 40MG [Suspect]
     Active Substance: FEBUXOSTAT
     Indication: BLOOD URIC ACID INCREASED
  6. CARDIVAS [Concomitant]
  7. PYRAZINAMIDE. [Concomitant]
     Active Substance: PYRAZINAMIDE
  8. RCINEX [Concomitant]
     Active Substance: ISONIAZID\RIFAMPIN
  9. COMBUTOL- ETHAMBUTOL [Concomitant]
  10. FLAVEDON [Concomitant]
  11. LANOXIN [Concomitant]
     Active Substance: DIGOXIN
  12. ALDACTONE [Concomitant]
     Active Substance: SPIRONOLACTONE
  13. ISONIAZID + RIFAMPICIN [Concomitant]
     Active Substance: ISONIAZID\RIFAMPIN
  14. IVABRAD [Concomitant]
  15. IVABRADIN [Concomitant]
     Active Substance: IVABRADINE
  16. ETHAMBUTOL [Concomitant]
     Active Substance: ETHAMBUTOL HYDROCHLORIDE

REACTIONS (4)
  - Heart rate increased [None]
  - Therapy non-responder [None]
  - Cardiac pseudoaneurysm [None]
  - Cardiac arrest [None]

NARRATIVE: CASE EVENT DATE: 20181201
